FAERS Safety Report 4752951-6 (Version None)
Quarter: 2005Q3

REPORT INFORMATION
  Report Type: 
  Country: None (occurrence: None)
  Receive Date: 20050825
  Receipt Date: 20050804
  Transmission Date: 20060218
  Serious: Yes (Death)
  Sender: FDA-Public Use
  Company Number: USA050597132

PATIENT
  Age: 51 Year
  Sex: Male

DRUGS (4)
  1. SYMBYAX [Suspect]
     Indication: SCHIZOPHRENIA
     Dates: start: 20040101
  2. ZYPREXA [Suspect]
     Indication: SCHIZOPHRENIA
     Dosage: 20 MG
     Dates: start: 20040101
  3. VALIUM [Concomitant]
  4. FENTANYL [Concomitant]

REACTIONS (10)
  - AORTIC ATHEROSCLEROSIS [None]
  - BLADDER DILATATION [None]
  - CORONARY ARTERY ATHEROSCLEROSIS [None]
  - CORONARY ARTERY STENOSIS [None]
  - PNEUMONIA ASPIRATION [None]
  - PRESCRIBED OVERDOSE [None]
  - PULMONARY CONGESTION [None]
  - PULMONARY OEDEMA [None]
  - VICTIM OF HOMICIDE [None]
  - WRONG DRUG ADMINISTERED [None]
